FAERS Safety Report 9642096 (Version 3)
Quarter: 2013Q4

REPORT INFORMATION
  Report Type: Spontaneous
  Country: JP (occurrence: JP)
  Receive Date: 20131023
  Receipt Date: 20131127
  Transmission Date: 20140711
  Serious: Yes (Life-Threatening, Hospitalization)
  Sender: FDA-Public Use
  Company Number: JP-ROCHE-1293078

PATIENT
  Age: 60 Year
  Sex: Male

DRUGS (17)
  1. ACTIVACIN [Suspect]
     Indication: EMBOLIC STROKE
     Route: 040
     Dates: start: 20121213, end: 20121213
  2. ACTIVACIN [Suspect]
     Route: 041
     Dates: start: 20121213, end: 20121213
  3. REBAMIPIDE [Concomitant]
     Route: 065
     Dates: start: 20121228
  4. NASPALUN [Concomitant]
     Route: 065
     Dates: start: 20121229, end: 20130104
  5. RADICUT [Concomitant]
     Route: 065
     Dates: start: 20121213, end: 20121216
  6. GASTER (FAMOTIDINE) [Concomitant]
     Route: 065
     Dates: start: 20121213, end: 20121218
  7. CEFTRIAXONE [Concomitant]
     Route: 065
     Dates: start: 20121213, end: 20121226
  8. HEPARIN SODIUM [Concomitant]
     Route: 065
     Dates: start: 20121214, end: 20121231
  9. FUROSEMIDE [Concomitant]
     Route: 065
     Dates: start: 20121214, end: 20121219
  10. FUROSEMIDE [Concomitant]
     Route: 065
     Dates: start: 20121214, end: 20121214
  11. SPIRONOLACTONE [Concomitant]
     Route: 065
     Dates: start: 20121214
  12. WARFARIN [Concomitant]
     Route: 065
     Dates: start: 20121215
  13. DIART [Concomitant]
     Route: 065
     Dates: start: 20121215
  14. ACECOL [Concomitant]
     Route: 065
     Dates: start: 20121215
  15. LANSOPRAZOLE [Concomitant]
     Route: 065
     Dates: start: 20121219, end: 20121227
  16. FAMOTIDINE D [Concomitant]
     Route: 065
     Dates: start: 20121228
  17. ENTERONON-R [Concomitant]
     Route: 065
     Dates: start: 20121231

REACTIONS (1)
  - Arterial occlusive disease [Recovered/Resolved]
